FAERS Safety Report 4641625-8 (Version None)
Quarter: 2005Q2

REPORT INFORMATION
  Report Type: 
  Country: None (occurrence: None)
  Receive Date: 20050421
  Receipt Date: 20050412
  Transmission Date: 20051028
  Serious: Yes (Other)
  Sender: FDA-Public Use
  Company Number: US-ABBOTT-05P-163-0297153-00

PATIENT
  Age: 22 Year
  Sex: Male
  Weight: 128 kg

DRUGS (5)
  1. SEVOFLURANE [Suspect]
     Indication: MAINTENANCE OF ANAESTHESIA
     Dosage: NOT REPORTED, NOT REPORTED, NOT REPORTED
  2. KETAMINE HCL [Concomitant]
     Indication: INDUCTION OF ANAESTHESIA
     Dosage: NOT REPORTED, NOT REPORTED, NOT REPORTED
  3. MIDAZOLAM HCL [Concomitant]
     Indication: DRUG USE FOR UNKNOWN INDICATION
     Dosage: NOT REPORTED, NOT REPORTED, NOT REPORTED
  4. ROCURONIUM [Concomitant]
     Indication: MAINTENANCE OF ANAESTHESIA
     Dosage: NOT REPORTED, NOT REPORTED, NOT REPORTED
  5. FENTANYL [Concomitant]
     Indication: MAINTENANCE OF ANAESTHESIA
     Dosage: NOT REPORTED, NOT REPORTED, NOT REPORTED

REACTIONS (4)
  - BLOOD GLUCOSE ABNORMAL [None]
  - HYPOVENTILATION [None]
  - OROPHARYNGEAL SPASM [None]
  - WHEEZING [None]
